FAERS Safety Report 6765002-9 (Version None)
Quarter: 2010Q2

REPORT INFORMATION
  Report Type: 
  Country: None (occurrence: None)
  Receive Date: 20100609
  Receipt Date: 20100505
  Transmission Date: 20101027
  Serious: No
  Sender: FDA-Public Use
  Company Number: 2010011148

PATIENT
  Age: 7 Year
  Sex: Male
  Weight: 18.5975 kg

DRUGS (1)
  1. CHILDREN'S ZYRTEC ALLERGY [Suspect]
     Indication: HYPERSENSITIVITY
     Dosage: 1 TSP EVERY NIGHTLY ORAL
     Route: 048
     Dates: start: 20100420, end: 20100504

REACTIONS (5)
  - DIZZINESS [None]
  - EYE DISORDER [None]
  - HEADACHE [None]
  - MALAISE [None]
  - PRODUCT QUALITY ISSUE [None]
